FAERS Safety Report 15552920 (Version 1)
Quarter: 2018Q4

REPORT INFORMATION
  Report Type: Spontaneous
  Country: SE (occurrence: SE)
  Receive Date: 20181025
  Receipt Date: 20181025
  Transmission Date: 20190205
  Serious: Yes (Death)
  Sender: FDA-Public Use
  Company Number: SE-TEVA-2018-SE-968240

PATIENT
  Age: 81 Year
  Sex: Male

DRUGS (8)
  1. TROMBYL 75MG [Concomitant]
     Route: 065
     Dates: start: 20171123, end: 20180921
  2. SIMVASTATIN 20MG [Concomitant]
     Active Substance: SIMVASTATIN
     Route: 065
     Dates: start: 20171122, end: 20180921
  3. MIRTAZIPIN 15MG [Concomitant]
     Route: 065
     Dates: start: 20180502, end: 20180921
  4. ZOPICLONE 7,5MG [Concomitant]
     Route: 065
     Dates: start: 20180417, end: 20180921
  5. METOPROLOL 25MG [Concomitant]
     Active Substance: METOPROLOL
     Route: 065
     Dates: start: 20171122, end: 20180921
  6. CANDESARTAN/ HYDROCHLOROTHIAZIDE 16MG/12,5MG [Concomitant]
     Route: 065
     Dates: start: 20171123, end: 20180921
  7. BUPRENORPHINE. [Suspect]
     Active Substance: BUPRENORPHINE
     Indication: PAIN
     Dosage: 5 MKG/H 1 PATCH EVERY 7 DAYS
     Route: 065
     Dates: start: 20180920, end: 20180921
  8. ALVEDON 1G [Concomitant]
     Route: 065
     Dates: start: 20180219, end: 20180921

REACTIONS (3)
  - Dysphagia [Fatal]
  - Sedation [Fatal]
  - Hypotension [Fatal]

NARRATIVE: CASE EVENT DATE: 20180921
